FAERS Safety Report 17406889 (Version 1)
Quarter: 2020Q1

REPORT INFORMATION
  Report Type: Spontaneous
  Country: CA (occurrence: CA)
  Receive Date: 20200212
  Receipt Date: 20200212
  Transmission Date: 20200409
  Serious: Yes (Other)
  Sender: FDA-Public Use
  Company Number: CA-AUROBINDO-AUR-APL-2020-006526

PATIENT
  Age: 28 Year
  Sex: Female

DRUGS (8)
  1. OLANZAPINE. [Suspect]
     Active Substance: OLANZAPINE
     Indication: MANIA
     Dosage: UNK
     Route: 065
  2. OLANZAPINE. [Suspect]
     Active Substance: OLANZAPINE
     Indication: BRIEF PSYCHOTIC DISORDER, WITH POSTPARTUM ONSET
     Dosage: ONCE A DAY
     Route: 065
  3. CLONAZEPAM. [Concomitant]
     Active Substance: CLONAZEPAM
     Indication: BRIEF PSYCHOTIC DISORDER, WITH POSTPARTUM ONSET
  4. VALPROIC ACID. [Concomitant]
     Active Substance: VALPROIC ACID
     Indication: BRIEF PSYCHOTIC DISORDER, WITH POSTPARTUM ONSET
     Dosage: UNK
     Route: 065
  5. CLONAZEPAM. [Concomitant]
     Active Substance: CLONAZEPAM
     Indication: MANIA
     Dosage: UNK
     Route: 065
  6. CLONAZEPAM. [Concomitant]
     Active Substance: CLONAZEPAM
     Indication: BRIEF PSYCHOTIC DISORDER, WITH POSTPARTUM ONSET
  7. VALPROIC ACID. [Concomitant]
     Active Substance: VALPROIC ACID
     Indication: MANIA
     Dosage: UNK
     Route: 065
  8. CLONAZEPAM. [Concomitant]
     Active Substance: CLONAZEPAM
     Indication: MANIA
     Dosage: UNK
     Route: 065

REACTIONS (4)
  - Ketosis-prone diabetes mellitus [Recovered/Resolved]
  - Weight increased [Recovered/Resolved]
  - Overdose [Recovered/Resolved]
  - Hyperglycaemia [Recovered/Resolved]
